FAERS Safety Report 24200494 (Version 1)
Quarter: 2024Q3

REPORT INFORMATION
  Report Type: Spontaneous
  Country: US (occurrence: None)
  Receive Date: 20240809
  Receipt Date: 20240809
  Transmission Date: 20241017
  Serious: Yes (Hospitalization)
  Sender: Public
  Company Number: None

PATIENT
  Sex: Female

DRUGS (3)
  1. TADALAFIL [Suspect]
     Active Substance: TADALAFIL
     Indication: Pulmonary arterial hypertension
     Dosage: FREQUENCY : DAILY;?
     Route: 048
     Dates: start: 202403
  2. REMODULIN EVIGCY PREMIX (BRG) [Concomitant]
  3. ADCIRCA, LETAIRIS, C-TREPROSTINIL(3ML)RM [Concomitant]

REACTIONS (2)
  - Infection [None]
  - Pneumonia [None]
